FAERS Safety Report 6469848-6 (Version None)
Quarter: 2009Q4

REPORT INFORMATION
  Report Type: 
  Country: None (occurrence: None)
  Receive Date: 20091201
  Receipt Date: 20091119
  Transmission Date: 20100525
  Serious: No
  Sender: FDA-Public Use
  Company Number: 2009AL007370

PATIENT
  Age: 43 Year
  Sex: Male

DRUGS (1)
  1. PHENOBARBITAL TAB [Suspect]
     Indication: NERVOUS SYSTEM DISORDER
     Dosage: 100 MG;QD

REACTIONS (4)
  - DUPUYTREN'S CONTRACTURE [None]
  - FIBROMATOSIS [None]
  - SKIN GRAFT [None]
  - SKIN NODULE [None]
